FAERS Safety Report 9029248 (Version 1)
Quarter: 2013Q1

REPORT INFORMATION
  Report Type: Spontaneous
  Country: IT (occurrence: IT)
  Receive Date: 20130125
  Receipt Date: 20130125
  Transmission Date: 20140127
  Serious: Yes (Hospitalization)
  Sender: FDA-Public Use
  Company Number: IT-009507513-1301ITA009275

PATIENT
  Age: 61 Year
  Sex: Male

DRUGS (3)
  1. RIBAVIRIN [Suspect]
     Indication: HEPATIC CIRRHOSIS
     Dosage: 400 MG, QD
     Route: 048
     Dates: start: 20120213, end: 20121220
  2. INTERFERON ALFA-2A [Suspect]
     Indication: HEPATIC CIRRHOSIS
     Dosage: 180 MG, QW
     Route: 058
     Dates: start: 20120213, end: 20121219
  3. OMEPRAZOLE [Concomitant]

REACTIONS (3)
  - Electrolyte imbalance [Recovered/Resolved]
  - Cough [Recovered/Resolved]
  - Dyspnoea [Recovered/Resolved]
